FAERS Safety Report 4676680-2 (Version None)
Quarter: 2005Q2

REPORT INFORMATION
  Report Type: 
  Country: None (occurrence: None)
  Receive Date: 20050527
  Receipt Date: 20050518
  Transmission Date: 20051028
  Serious: Yes (Other)
  Sender: FDA-Public Use
  Company Number: 2005UW07650

PATIENT
  Sex: Female

DRUGS (2)
  1. SEROQUEL [Suspect]
     Route: 048
  2. DEPAKOTE [Concomitant]

REACTIONS (5)
  - AKINESIA [None]
  - DEFAECATION URGENCY [None]
  - ILL-DEFINED DISORDER [None]
  - IMMOBILE [None]
  - MICTURITION URGENCY [None]
